FAERS Safety Report 4324776-7 (Version None)
Quarter: 2004Q1

REPORT INFORMATION
  Report Type: 
  Country: None (occurrence: None)
  Receive Date: 20040326
  Receipt Date: 20040316
  Transmission Date: 20041129
  Serious: Yes (Hospitalization)
  Sender: FDA-Public Use
  Company Number: JP-GLAXOSMITHKLINE-A0503179A

PATIENT
  Age: 57 Year
  Sex: Male

DRUGS (4)
  1. NAVELBINE [Suspect]
     Dosage: 60MG WEEKLY
     Route: 042
     Dates: start: 20031118, end: 20031125
  2. NASEA [Concomitant]
     Dates: start: 20031118, end: 20031125
  3. RINDERON [Concomitant]
     Dates: start: 20031118, end: 20031125
  4. GEMCITABINE [Concomitant]
     Dosage: 1400MG WEEKLY
     Route: 065

REACTIONS (17)
  - ABDOMINAL DISTENSION [None]
  - ABDOMINAL PAIN [None]
  - BACK PAIN [None]
  - BLOOD AMYLASE INCREASED [None]
  - BOWEL SOUNDS ABNORMAL [None]
  - COLD SWEAT [None]
  - CONSTIPATION [None]
  - DIARRHOEA [None]
  - EPIGASTRIC DISCOMFORT [None]
  - FAECES DISCOLOURED [None]
  - GASTRODUODENAL ULCER [None]
  - NAUSEA [None]
  - PANCREATITIS ACUTE [None]
  - PYREXIA [None]
  - STOOLS WATERY [None]
  - VOMITING [None]
  - WHITE BLOOD CELL COUNT INCREASED [None]
